FAERS Safety Report 5781937-8 (Version None)
Quarter: 2008Q2

REPORT INFORMATION
  Report Type: 
  Country: None (occurrence: None)
  Receive Date: 20080623
  Receipt Date: 20080613
  Transmission Date: 20081010
  Serious: Yes (Other)
  Sender: FDA-Public Use
  Company Number: B0525309A

PATIENT
  Age: 49 Year
  Sex: Male

DRUGS (1)
  1. PAROXETINE HCL [Suspect]
     Indication: DEPRESSION
     Dosage: 30MG PER DAY
     Route: 048
     Dates: start: 20080101, end: 20080611

REACTIONS (4)
  - CONFUSIONAL STATE [None]
  - ECCHYMOSIS [None]
  - HALLUCINATION, VISUAL [None]
  - WITHDRAWAL SYNDROME [None]
